FAERS Safety Report 7440012-7 (Version None)
Quarter: 2011Q2

REPORT INFORMATION
  Report Type: 
  Country: None (occurrence: None)
  Receive Date: 20110427
  Receipt Date: 20110422
  Transmission Date: 20111010
  Serious: Yes (Life-Threatening, Hospitalization, Other)
  Sender: FDA-Public Use
  Company Number: PHHY2011JP08719

PATIENT
  Sex: Male
  Weight: 62 kg

DRUGS (25)
  1. SOLU-MEDROL [Suspect]
     Dosage: 1 G
     Route: 041
     Dates: start: 20100210, end: 20100212
  2. PROGRAF [Suspect]
     Indication: DERMATOMYOSITIS
     Dosage: 3 MG
     Route: 048
     Dates: start: 20100210, end: 20100216
  3. TAKEPRON [Concomitant]
     Dosage: 30 MG
     Route: 048
     Dates: start: 20091121, end: 20091222
  4. ENDOXAN [Suspect]
     Indication: DERMATOMYOSITIS
     Dosage: 800 MG
     Route: 041
     Dates: start: 20091223, end: 20091223
  5. MUCOSTA [Concomitant]
     Dosage: 300 MG
     Route: 048
     Dates: start: 20091121, end: 20091222
  6. PREDNISOLONE [Suspect]
     Indication: INTERSTITIAL LUNG DISEASE
     Dosage: 60 MG
     Route: 048
     Dates: start: 20091124, end: 20091217
  7. PREDNISOLONE [Suspect]
     Dosage: 35 MG
     Route: 048
     Dates: start: 20100527
  8. PREDNISOLONE [Suspect]
     Dosage: 60 MG
     Route: 048
  9. SOLU-MEDROL [Suspect]
     Indication: DERMATOMYOSITIS
     Dosage: 1 G
     Route: 041
     Dates: start: 20091121, end: 20091123
  10. ENDOXAN [Suspect]
     Dosage: 800 MG
     Route: 041
     Dates: start: 20100122, end: 20100122
  11. STEROIDS NOS [Concomitant]
     Indication: INTERSTITIAL LUNG DISEASE
  12. BAKTAR [Concomitant]
     Indication: OPPORTUNISTIC INFECTION PROPHYLAXIS
     Dosage: 12 DF, UNK
     Route: 048
     Dates: start: 20091129, end: 20110422
  13. OMEPRAL [Concomitant]
     Dosage: 20 MG
     Route: 048
     Dates: start: 20091223, end: 20110422
  14. DENOSINE [Concomitant]
     Indication: CYTOMEGALOVIRUS INFECTION
     Dosage: 300 MG
     Route: 041
     Dates: start: 20100115, end: 20100419
  15. DENOSINE [Concomitant]
     Dosage: 300 MG
     Route: 041
     Dates: start: 20100115, end: 20100419
  16. NEORAL [Suspect]
     Indication: DERMATOMYOSITIS
     Dosage: 150 MG, DAILY
     Route: 048
     Dates: start: 20091124, end: 20100209
  17. PREDNISOLONE [Suspect]
     Indication: DERMATOMYOSITIS
     Dosage: 90 MG
     Route: 048
     Dates: start: 20091218, end: 20100121
  18. BENET [Concomitant]
     Dosage: 17.5 MG
     Route: 048
     Dates: start: 20091205, end: 20110422
  19. KENKETSU GLOVENIN-I-NICHIYAKU [Concomitant]
     Indication: INTERSTITIAL LUNG DISEASE
     Dosage: 25 G
     Route: 041
     Dates: start: 20100217, end: 20100221
  20. NEORAL [Suspect]
     Indication: INTERSTITIAL LUNG DISEASE
  21. PREDNISOLONE [Suspect]
     Dosage: 60 MG
     Route: 048
     Dates: start: 20100219, end: 20100526
  22. SELBEX [Concomitant]
     Dosage: 150 MG
     Route: 048
     Dates: start: 20091223, end: 20110422
  23. PREDNISOLONE [Suspect]
     Dosage: 80 MG
     Route: 048
     Dates: start: 20100122, end: 20100218
  24. FUNGIZONE [Concomitant]
     Dosage: 3 ML
     Route: 048
     Dates: start: 20100114, end: 20100401
  25. ORGARAN [Concomitant]
     Dosage: 2500 DF, UNK
     Route: 041
     Dates: start: 20100306, end: 20100310

REACTIONS (11)
  - ASPERGILLOMA [None]
  - PNEUMOMEDIASTINUM [None]
  - BRONCHOPULMONARY ASPERGILLOSIS [None]
  - LIVER FUNCTION TEST ABNORMAL [None]
  - RESPIRATORY FAILURE [None]
  - DYSPHONIA [None]
  - CYTOMEGALOVIRUS TEST POSITIVE [None]
  - PULMONARY CAVITATION [None]
  - COMPUTERISED TOMOGRAM THORAX ABNORMAL [None]
  - BLOOD BETA-D-GLUCAN ABNORMAL [None]
  - INTERSTITIAL LUNG DISEASE [None]
